FAERS Safety Report 23914530 (Version 1)
Quarter: 2024Q2

REPORT INFORMATION
  Report Type: Spontaneous
  Country: US (occurrence: US)
  Receive Date: 20240529
  Receipt Date: 20240529
  Transmission Date: 20240716
  Serious: Yes (Other)
  Sender: FDA-Public Use
  Company Number: US-SUN PHARMACEUTICAL INDUSTRIES LTD-2024R1-448272

PATIENT
  Age: 27 Year
  Sex: Female

DRUGS (14)
  1. AMLODIPINE [Suspect]
     Active Substance: AMLODIPINE BESYLATE
     Indication: Hypertension
     Dosage: UNK
     Route: 065
  2. CARVEDILOL [Suspect]
     Active Substance: CARVEDILOL
     Indication: Hypertension
     Dosage: UNK
     Route: 065
  3. CLONIDINE [Suspect]
     Active Substance: CLONIDINE
     Indication: Hypertension
     Dosage: UNK
     Route: 065
  4. GUANFACINE [Suspect]
     Active Substance: GUANFACINE
     Indication: Hypertension
     Dosage: UNK
     Route: 065
  5. METOPROLOL [Suspect]
     Active Substance: METOPROLOL
     Indication: Hypertension
     Dosage: UNK
     Route: 065
  6. SPIRONOLACTONE [Suspect]
     Active Substance: SPIRONOLACTONE
     Indication: Hypertension
     Dosage: UNK
     Route: 065
  7. CAPTOPRIL [Suspect]
     Active Substance: CAPTOPRIL
     Indication: Hypertension
     Dosage: UNK
     Route: 065
  8. HYDRALAZINE [Suspect]
     Active Substance: HYDRALAZINE HYDROCHLORIDE
     Indication: Hypertension
     Dosage: UNK
     Route: 065
  9. LABETALOL [Suspect]
     Active Substance: LABETALOL\LABETALOL HYDROCHLORIDE
     Indication: Hypertension
     Dosage: UNK
     Route: 065
  10. LOSARTAN [Suspect]
     Active Substance: LOSARTAN
     Indication: Hypertension
     Dosage: UNK
     Route: 065
  11. TELMISARTAN [Suspect]
     Active Substance: TELMISARTAN
     Indication: Hypertension
     Dosage: UNK
     Route: 065
  12. AMILORIDE [Suspect]
     Active Substance: AMILORIDE
     Indication: Hypertension
     Dosage: UNK
     Route: 065
  13. EPLERENONE [Suspect]
     Active Substance: EPLERENONE
     Indication: Hypertension
     Dosage: UNK
     Route: 065
  14. TRIAMTERENE [Suspect]
     Active Substance: TRIAMTERENE
     Indication: Hypertension
     Dosage: UNK
     Route: 065

REACTIONS (11)
  - Drug ineffective [Unknown]
  - Malaise [Unknown]
  - Fatigue [Unknown]
  - Mental impairment [Unknown]
  - Tachycardia [Unknown]
  - Rash [Unknown]
  - Oedema peripheral [Unknown]
  - Paraesthesia [Unknown]
  - Nausea [Unknown]
  - Alopecia [Unknown]
  - Blood pressure decreased [Unknown]
